FAERS Safety Report 8277659-4 (Version None)
Quarter: 2012Q2

REPORT INFORMATION
  Report Type: 
  Country: None (occurrence: None)
  Receive Date: 20120412
  Receipt Date: 20120404
  Transmission Date: 20120825
  Serious: Yes (Other)
  Sender: FDA-Public Use
  Company Number: JP-VERTEX PHARMACEUTICALS INC.-AE-2012-004967

PATIENT
  Age: 62 Year
  Sex: Female

DRUGS (7)
  1. MICARDIS [Concomitant]
     Route: 048
  2. NEO-MERCAZOLE TAB [Concomitant]
     Route: 048
  3. TELAVIC (TELAPREVIR) [Suspect]
     Indication: HEPATITIS C
     Route: 048
     Dates: start: 20120207, end: 20120212
  4. RIBAVIRIN [Concomitant]
     Indication: HEPATITIS C
     Route: 048
     Dates: start: 20120207, end: 20120221
  5. ALCENOL [Concomitant]
     Route: 048
     Dates: end: 20120212
  6. INTERFERON [Concomitant]
     Indication: HEPATITIS C
     Route: 051
     Dates: start: 20120207, end: 20120214
  7. EPADEL [Concomitant]
     Route: 048
     Dates: end: 20120221

REACTIONS (2)
  - BRADYCARDIA [None]
  - MALAISE [None]
